FAERS Safety Report 9893293 (Version 3)
Quarter: 2014Q1

REPORT INFORMATION
  Report Type: Spontaneous
  Country: JP (occurrence: JP)
  Receive Date: 20140213
  Receipt Date: 20140312
  Transmission Date: 20141002
  Serious: Yes (Hospitalization)
  Sender: FDA-Public Use
  Company Number: JP-ASTRAZENECA-2014SE08732

PATIENT
  Age: 86 Year
  Sex: Male

DRUGS (6)
  1. NEXIUM [Suspect]
     Indication: DUODENAL ULCER PERFORATION
     Route: 048
     Dates: start: 20140104, end: 20140119
  2. NEXIUM [Interacting]
     Indication: DUODENAL ULCER PERFORATION
     Route: 048
     Dates: start: 20140122
  3. VFEND [Interacting]
     Indication: BRONCHOPULMONARY ASPERGILLOSIS
     Route: 048
     Dates: start: 20140114, end: 20140119
  4. VFEND [Interacting]
     Indication: BRONCHOPULMONARY ASPERGILLOSIS
     Route: 048
     Dates: start: 20140122
  5. OMEPRAL [Suspect]
     Indication: DUODENAL ULCER PERFORATION
     Route: 041
     Dates: start: 20131225, end: 20140103
  6. MAGMITT [Suspect]
     Indication: BRONCHOPULMONARY ASPERGILLOSIS
     Route: 048
     Dates: start: 20140114, end: 20140119

REACTIONS (2)
  - Drug interaction [Unknown]
  - Myoclonus [Recovering/Resolving]
